FAERS Safety Report 4932959-8 (Version None)
Quarter: 2006Q1

REPORT INFORMATION
  Report Type: 
  Country: None (occurrence: None)
  Receive Date: 20060301
  Receipt Date: 20060301
  Transmission Date: 20060701
  Serious: Yes (Other)
  Sender: FDA-Public Use
  Company Number: None

PATIENT
  Sex: Female
  Weight: 35 kg

DRUGS (1)
  1. CIPRO IV [Suspect]
     Indication: ABSCESS
     Dosage: 400MG Q12HR IV DRIP
     Route: 041
     Dates: start: 20060118, end: 20060130

REACTIONS (3)
  - BLISTER [None]
  - PHOTOSENSITIVITY REACTION [None]
  - PSEUDOPORPHYRIA [None]
